FAERS Safety Report 20595080 (Version 1)
Quarter: 2022Q1

REPORT INFORMATION
  Report Type: Report from Study
  Country: DE (occurrence: DE)
  Receive Date: 20220315
  Receipt Date: 20220315
  Transmission Date: 20220424
  Serious: Yes (Hospitalization)
  Sender: FDA-Public Use
  Company Number: DE-BIOGEN-2022BI01105372

PATIENT
  Age: 0 Year
  Sex: Male

DRUGS (1)
  1. PLEGRIDY [Suspect]
     Active Substance: PEGINTERFERON BETA-1A
     Indication: Maternal exposure timing unspecified
     Route: 064
     Dates: start: 20170103, end: 20210608

REACTIONS (5)
  - Cerebral haemorrhage neonatal [Recovered/Resolved]
  - Cardiovascular disorder [Not Recovered/Not Resolved]
  - Neonatal seizure [Not Recovered/Not Resolved]
  - Muscle tightness [Not Recovered/Not Resolved]
  - Foetal exposure during pregnancy [Recovered/Resolved]

NARRATIVE: CASE EVENT DATE: 20210422
